FAERS Safety Report 9311558 (Version 1)
Quarter: 2013Q2

REPORT INFORMATION
  Report Type: Spontaneous
  Country: DE (occurrence: DE)
  Receive Date: 20130528
  Receipt Date: 20130528
  Transmission Date: 20140414
  Serious: Yes (Hospitalization)
  Sender: FDA-Public Use
  Company Number: DE-BAYER-2013-064693

PATIENT
  Age: 54 Year
  Sex: Female

DRUGS (1)
  1. AVALOX [Suspect]
     Indication: BRONCHOPNEUMONIA
     Dosage: DAILY DOSE 400 MG
     Route: 048

REACTIONS (1)
  - Agranulocytosis [Recovered/Resolved]
